FAERS Safety Report 5782051-8 (Version None)
Quarter: 2008Q2

REPORT INFORMATION
  Report Type: 
  Country: None (occurrence: None)
  Receive Date: 20080623
  Receipt Date: 20080618
  Transmission Date: 20081010
  Serious: Yes (Death, Hospitalization)
  Sender: FDA-Public Use
  Company Number: CA-BRISTOL-MYERS SQUIBB COMPANY-14233175

PATIENT
  Age: 72 Year
  Sex: Male
  Weight: 61 kg

DRUGS (4)
  1. ERBITUX [Suspect]
     Indication: COLON CANCER STAGE III
     Dosage: CYCLE1:2OCT2007(400MG/M2 OVER 2H-DAY1)(250MG/M2 OVER 1H-DAY8) CYCLE2-10:250MG/M2 OVER 1H ON DAYS1+8
     Route: 042
     Dates: start: 20080218, end: 20080218
  2. FLUOROURACIL [Suspect]
     Indication: COLON CANCER STAGE III
     Dosage: CYCLE1-10:400MG/M2 PUSH ON DAY1 FOLLOWED BY 2400MG/M2 CIV OVER 46-48H;CYCLE1 START DATE:2OCT2007.
     Route: 042
     Dates: start: 20080218, end: 20080218
  3. LEUCOVORIN CALCIUM [Suspect]
     Indication: COLON CANCER STAGE III
     Dosage: CYCLE1-10:400MG/M2 OVER 120 MIN ON DAY 1; CYCLE1 START DATE: 02-OCT-2007.
     Route: 042
     Dates: start: 20080218, end: 20080218
  4. ELOXATIN [Suspect]
     Indication: COLON CANCER STAGE III
     Dosage: CYCLE 1-10: 85MG/M2 OVER 120 MIN ON DAY1; CYCLE 1 START DATE: 02-OCT-2007.
     Route: 042
     Dates: start: 20080218, end: 20080218

REACTIONS (3)
  - PNEUMONIA [None]
  - PNEUMONITIS [None]
  - RESPIRATORY FAILURE [None]
